FAERS Safety Report 16018751 (Version 2)
Quarter: 2019Q2

REPORT INFORMATION
  Report Type: Spontaneous
  Country: FR (occurrence: FR)
  Receive Date: 20190228
  Receipt Date: 20190606
  Transmission Date: 20190711
  Serious: Yes (Death, Other)
  Sender: FDA-Public Use
  Company Number: FR-MYLANLABS-2019M1018378

PATIENT
  Age: 46 Year
  Sex: Male

DRUGS (6)
  1. IDARUBICIN [Suspect]
     Active Substance: IDARUBICIN
     Indication: CHLOROMA
  2. CYTARABINE. [Suspect]
     Active Substance: CYTARABINE
     Indication: TESTICULAR SEMINOMA (PURE) STAGE II
     Dosage: UNK, HIGH DOSE
     Route: 062
  3. CYTARABINE. [Suspect]
     Active Substance: CYTARABINE
     Indication: CHEMOTHERAPY
  4. IDARUBICIN [Suspect]
     Active Substance: IDARUBICIN
     Indication: CHEMOTHERAPY
  5. IDARUBICIN [Suspect]
     Active Substance: IDARUBICIN
     Indication: TESTICULAR SEMINOMA (PURE) STAGE II
     Dosage: UNK (HIGH DOSE)
     Route: 062
  6. CYTARABINE. [Suspect]
     Active Substance: CYTARABINE
     Indication: CHLOROMA

REACTIONS (4)
  - Colitis [Fatal]
  - Thrombocytopenia [Fatal]
  - Pneumonia [Fatal]
  - Subdural haemorrhage [Fatal]
